FAERS Safety Report 9372706 (Version 2)
Quarter: 2014Q2

REPORT INFORMATION
  Report Type: Report from Study
  Country: US (occurrence: US)
  Receive Date: 20130627
  Receipt Date: 20140626
  Transmission Date: 20141212
  Serious: Yes (Hospitalization, Other)
  Sender: FDA-Public Use
  Company Number: US-MYLANLABS-2013S1006468

PATIENT
  Age: 58 Year
  Sex: Male
  Weight: 72.8 kg

DRUGS (10)
  1. DOXYCYCLINE [Concomitant]
  2. ATIVAN [Concomitant]
  3. MINOCYCLINE [Concomitant]
  4. ARIPIPRAZOLE [Concomitant]
  5. CLOZAPINE TABLETS [Suspect]
     Indication: SCHIZOPHRENIA
     Route: 048
     Dates: start: 2010, end: 20130317
  6. CLOZAPINE TABLETS [Suspect]
     Indication: PSYCHOTIC DISORDER
     Route: 048
     Dates: start: 2010, end: 20130317
  7. CLOZAPINE TABLETS [Suspect]
     Indication: SCHIZOPHRENIA
     Route: 048
     Dates: start: 20130318, end: 20130319
  8. CLOZAPINE TABLETS [Suspect]
     Indication: PSYCHOTIC DISORDER
     Route: 048
     Dates: start: 20130318, end: 20130319
  9. RISPERDAL [Concomitant]
  10. ABILIFY [Concomitant]

REACTIONS (3)
  - Granulocytopenia [Not Recovered/Not Resolved]
  - Leukopenia [Not Recovered/Not Resolved]
  - Psychotic disorder [Not Recovered/Not Resolved]
